FAERS Safety Report 26170413 (Version 1)
Quarter: 2025Q4

REPORT INFORMATION
  Report Type: Spontaneous
  Country: US (occurrence: US)
  Receive Date: 20251217
  Receipt Date: 20251217
  Transmission Date: 20260119
  Serious: No
  Sender: ARDELYX
  Company Number: US-ARDELYX-2025ARDX007317

PATIENT
  Sex: Male

DRUGS (2)
  1. XPHOZAH [Suspect]
     Active Substance: TENAPANOR HYDROCHLORIDE
     Indication: Product used for unknown indication
     Dosage: 30 MG
     Route: 065
  2. XPHOZAH [Suspect]
     Active Substance: TENAPANOR HYDROCHLORIDE
     Dosage: 20 MG, BID, (TAKE 1 TABLET BY MOUTH TWICE A DAY 1 TABLET IN THE MORNING AND 1 TABLET AT NIGHT)
     Route: 065

REACTIONS (1)
  - Diarrhoea [Unknown]
